FAERS Safety Report 10068994 (Version 1)
Quarter: 2014Q2

REPORT INFORMATION
  Report Type: Spontaneous
  Country: GB (occurrence: GB)
  Receive Date: 20140409
  Receipt Date: 20140409
  Transmission Date: 20141212
  Serious: Yes (Other)
  Sender: FDA-Public Use
  Company Number: GB-TEVA-471812ISR

PATIENT
  Age: 50 Year
  Sex: Female
  Weight: 88.9 kg

DRUGS (2)
  1. MONTELUKAST [Suspect]
     Indication: HYPERCHOLESTEROLAEMIA
     Route: 048
     Dates: start: 20100303, end: 20101006
  2. ASPIRIN COATED [Concomitant]

REACTIONS (4)
  - Pain in extremity [Recovered/Resolved with Sequelae]
  - Feeling abnormal [Recovered/Resolved with Sequelae]
  - Disturbance in attention [Recovered/Resolved with Sequelae]
  - Abasia [Recovered/Resolved with Sequelae]
